FAERS Safety Report 17347134 (Version 1)
Quarter: 2020Q1

REPORT INFORMATION
  Report Type: Spontaneous
  Country: US (occurrence: US)
  Receive Date: 20200114
  Receipt Date: 20200114
  Transmission Date: 20200409
  Serious: Yes (Life-Threatening)
  Sender: FDA-Public Use
  Company Number: None

PATIENT
  Age: 66 Year
  Sex: Male
  Weight: 78.93 kg

DRUGS (1)
  1. FOSINOPRIL (FOSINOPRIL NA 40MG TAB) [Suspect]
     Active Substance: FOSINOPRIL
     Indication: HYPERTENSION
     Route: 048
     Dates: start: 20030507, end: 20080614

REACTIONS (1)
  - Angioedema [None]

NARRATIVE: CASE EVENT DATE: 20080615
